FAERS Safety Report 18585934 (Version 2)
Quarter: 2020Q4

REPORT INFORMATION
  Report Type: Spontaneous
  Country: US (occurrence: US)
  Receive Date: 20201207
  Receipt Date: 20201222
  Transmission Date: 20210114
  Serious: Yes (Other)
  Sender: FDA-Public Use
  Company Number: US-BAYER-2020-262776

PATIENT
  Age: 20 Year
  Sex: Female

DRUGS (1)
  1. MIRENA [Suspect]
     Active Substance: LEVONORGESTREL
     Indication: CONTRACEPTION
     Dosage: 20 ?G PER DAY, CONTINUOUSLY
     Route: 015
     Dates: start: 20201025, end: 20201118

REACTIONS (6)
  - Abdominal pain lower [None]
  - Uterine cervix stenosis [None]
  - Device physical property issue [None]
  - Device use error [None]
  - Device physical property issue [None]
  - Genital haemorrhage [None]

NARRATIVE: CASE EVENT DATE: 20201118
